FAERS Safety Report 10173275 (Version 1)
Quarter: 2014Q2

REPORT INFORMATION
  Report Type: Spontaneous
  Country: US (occurrence: None)
  Receive Date: 20140514
  Receipt Date: 20140514
  Transmission Date: 20141212
  Serious: No
  Sender: FDA-Public Use
  Company Number: None

PATIENT
  Age: 33 Year
  Sex: Female
  Weight: 58.51 kg

DRUGS (1)
  1. CYMBALTA [Suspect]
     Indication: GENERALISED ANXIETY DISORDER
     Dosage: 1 PILL ONCE DAILY TAKEN BY MOUTH
     Route: 048
     Dates: start: 20131203, end: 20140503

REACTIONS (12)
  - Exposure during pregnancy [None]
  - Visual impairment [None]
  - Vision blurred [None]
  - Dizziness [None]
  - Nausea [None]
  - Headache [None]
  - Photosensitivity reaction [None]
  - Affective disorder [None]
  - Anger [None]
  - Crying [None]
  - Withdrawal syndrome [None]
  - Toxicity to various agents [None]
